FAERS Safety Report 8051436-1 (Version None)
Quarter: 2012Q1

REPORT INFORMATION
  Report Type: 
  Country: None (occurrence: None)
  Receive Date: 20120117
  Receipt Date: 20101124
  Transmission Date: 20120608
  Serious: Yes (Death)
  Sender: FDA-Public Use
  Company Number: US-ROCHE-1028346

PATIENT
  Sex: Male
  Weight: 76.272 kg

DRUGS (1)
  1. AVASTIN [Suspect]
     Indication: HEPATIC NEOPLASM MALIGNANT

REACTIONS (1)
  - DISEASE PROGRESSION [None]
